FAERS Safety Report 7946259-5 (Version None)
Quarter: 2011Q4

REPORT INFORMATION
  Report Type: 
  Country: None (occurrence: None)
  Receive Date: 20111129
  Receipt Date: 20111116
  Transmission Date: 20120403
  Serious: Yes (Other)
  Sender: FDA-Public Use
  Company Number: KR-JNJFOC-20111108061

PATIENT
  Age: 56 Year
  Sex: Male

DRUGS (3)
  1. TYLENOL (CAPLET) [Suspect]
     Route: 048
  2. TYLENOL (CAPLET) [Suspect]
     Indication: PRODUCT USED FOR UNKNOWN INDICATION
     Route: 048
  3. DIABETES MEDICATION [Concomitant]

REACTIONS (4)
  - WRONG DRUG ADMINISTERED [None]
  - LIVER DISORDER [None]
  - TUBERCULOSIS [None]
  - FATIGUE [None]
